FAERS Safety Report 19754555 (Version 1)
Quarter: 2021Q3

REPORT INFORMATION
  Report Type: Other
  Country: IT (occurrence: IT)
  Receive Date: 20210827
  Receipt Date: 20210827
  Transmission Date: 20211014
  Serious: Yes (Other)
  Sender: FDA-Public Use
  Company Number: IT-ROCHE-2893819

PATIENT

DRUGS (2)
  1. 5?FLUOROURACIL [Suspect]
     Active Substance: FLUOROURACIL
     Indication: RECTAL CANCER
     Dosage: DOSE OF 225 MG/M2/D
     Route: 042
  2. CAPECITABINE. [Suspect]
     Active Substance: CAPECITABINE
     Indication: RECTAL CANCER
     Route: 048

REACTIONS (4)
  - Anaemia [Unknown]
  - Proctalgia [Unknown]
  - Neutropenia [Unknown]
  - Diarrhoea [Unknown]
